FAERS Safety Report 10149474 (Version 2)
Quarter: 2014Q2

REPORT INFORMATION
  Report Type: Report from Study
  Country: ES (occurrence: ES)
  Receive Date: 20140502
  Receipt Date: 20140502
  Transmission Date: 20141212
  Serious: Yes (Death, Hospitalization)
  Sender: FDA-Public Use
  Company Number: ES-ELI_LILLY_AND_COMPANY-ES201210004572

PATIENT
  Age: 62 Year
  Sex: Female
  Weight: 61.6 kg

DRUGS (7)
  1. RAMUCIRUMAB [Suspect]
     Indication: COLORECTAL CANCER METASTATIC
     Dosage: 8 MG/KG, EVERY 14 DAYS
     Route: 042
     Dates: start: 20120426, end: 20121008
  2. IRINOTECAN [Suspect]
     Indication: COLORECTAL CANCER METASTATIC
     Dosage: 180 MG/M2, DAY 1 EVERY 14 DAYS
     Route: 042
     Dates: start: 20120426, end: 20121008
  3. FOLINIC ACID [Suspect]
     Indication: COLORECTAL CANCER METASTATIC
     Dosage: 400 MG/M2, DAY 1, EVERY 14 DAYS
     Route: 042
     Dates: start: 20120426, end: 20121008
  4. 5-FLUOROURACIL [Suspect]
     Indication: COLORECTAL CANCER METASTATIC
     Dosage: 400 MG/M2, ON DAY 1, EVERY 14 DAYS.
     Route: 040
     Dates: start: 20120426, end: 20121008
  5. 5-FLUOROURACIL [Suspect]
     Dosage: 2400 MG/M2, ON DAYS 1 AND 2 EVERY 14 DAYS
     Route: 042
     Dates: start: 20120426, end: 20121008
  6. METOCLOPRAMIDE [Concomitant]
     Indication: PROPHYLAXIS OF NAUSEA AND VOMITING
     Dosage: UNK
     Dates: end: 20121015
  7. BROMAZEPAM [Concomitant]
     Indication: INSOMNIA
     Dosage: UNK
     Dates: end: 20121015

REACTIONS (1)
  - Large intestinal haemorrhage [Fatal]
